FAERS Safety Report 10080727 (Version 1)
Quarter: 2014Q2

REPORT INFORMATION
  Report Type: Spontaneous
  Country: US (occurrence: US)
  Receive Date: 20140416
  Receipt Date: 20140416
  Transmission Date: 20141212
  Serious: Yes (Other)
  Sender: FDA-Public Use
  Company Number: US-AMGEN-USASP2014027337

PATIENT
  Age: 53 Year
  Sex: Female
  Weight: 64.4 kg

DRUGS (11)
  1. TOPROL [Concomitant]
     Dosage: 25 MG, UNK
  2. SKELAXIN                           /00611501/ [Concomitant]
     Dosage: 800 MG, UNK
  3. NEURONTIN [Concomitant]
     Dosage: 100 MG, UNK
  4. TEGRETOL [Concomitant]
     Dosage: 200 MG, UNK
  5. HYDROCHLOROTH [Concomitant]
     Dosage: 12.5 MG, UNK
  6. CYMBALTA [Concomitant]
     Dosage: 20 MG, UNK
  7. ABILIFY [Concomitant]
     Dosage: 10 MG, UNK
  8. METHOTREXATE [Concomitant]
     Dosage: 2.5 MG, UNK
  9. FOLIC ACID [Concomitant]
     Dosage: UNK
  10. MOTRIN [Concomitant]
     Dosage: 400 MG, UNK
  11. ENBREL [Suspect]
     Indication: PRODUCT USED FOR UNKNOWN INDICATION
     Dosage: 50 MG, QWK
     Route: 058

REACTIONS (2)
  - Swelling face [Recovered/Resolved]
  - Joint swelling [Recovered/Resolved]
